FAERS Safety Report 21537199 (Version 9)
Quarter: 2023Q2

REPORT INFORMATION
  Report Type: Report from Study
  Country: US (occurrence: US)
  Receive Date: 20221101
  Receipt Date: 20230608
  Transmission Date: 20230721
  Serious: Yes (Other)
  Sender: FDA-Public Use
  Company Number: US-NOVARTISTESTPH-NVSC2022US245862

PATIENT
  Sex: Male

DRUGS (2)
  1. COSENTYX [Suspect]
     Active Substance: SECUKINUMAB
     Indication: Psoriatic arthropathy
     Dosage: 150 MG, QMO
     Route: 058
  2. COSENTYX [Suspect]
     Active Substance: SECUKINUMAB
     Indication: Psoriasis
     Dosage: 300 MG, QMO
     Route: 058

REACTIONS (9)
  - Psoriatic arthropathy [Unknown]
  - Illness [Unknown]
  - Nerve injury [Unknown]
  - Memory impairment [Unknown]
  - Acne [Unknown]
  - Discomfort [Unknown]
  - Psoriasis [Unknown]
  - Pain [Unknown]
  - Therapeutic response shortened [Unknown]
